FAERS Safety Report 4853453-9 (Version None)
Quarter: 2005Q4

REPORT INFORMATION
  Report Type: 
  Country: None (occurrence: None)
  Receive Date: 20051130
  Receipt Date: 20051005
  Transmission Date: 20060501
  Serious: No
  Sender: FDA-Public Use
  Company Number: WAES 0510USA03038

PATIENT
  Age: 62 Year
  Sex: Female

DRUGS (5)
  1. ZETIA [Suspect]
     Indication: BLOOD CHOLESTEROL INCREASED
     Dosage: 10 MG/DAILY/PO
     Route: 048
     Dates: start: 20050905, end: 20051003
  2. DIAZIDE [Concomitant]
  3. PREMARIN [Concomitant]
  4. TENORMIN [Concomitant]
  5. MECLIZINE [Concomitant]

REACTIONS (4)
  - ARTHRALGIA [None]
  - BACK PAIN [None]
  - GROIN PAIN [None]
  - MUSCULOSKELETAL DISCOMFORT [None]
